FAERS Safety Report 19153002 (Version 1)
Quarter: 2021Q2

REPORT INFORMATION
  Report Type: Spontaneous
  Country: US (occurrence: US)
  Receive Date: 20210417
  Receipt Date: 20210417
  Transmission Date: 20210717
  Serious: No
  Sender: FDA-Public Use
  Company Number: None

PATIENT
  Age: 61 Year
  Sex: Female
  Weight: 47.25 kg

DRUGS (8)
  1. AMOXICILLIN AND CLAVULANATE POTASSIUM TABLETS, USP [Suspect]
     Active Substance: AMOXICILLIN\CLAVULANATE POTASSIUM
     Indication: DIVERTICULITIS
     Dosage: ?          QUANTITY:1 TABLET(S);?
     Route: 048
     Dates: start: 20210416, end: 20210417
  2. XOLAIR [Concomitant]
     Active Substance: OMALIZUMAB
  3. MULTIVITAMIN [Concomitant]
     Active Substance: VITAMINS
  4. VALSARTAN. [Concomitant]
     Active Substance: VALSARTAN
  5. SYNTHROID [Concomitant]
     Active Substance: LEVOTHYROXINE SODIUM
  6. VITAMIN D [Concomitant]
     Active Substance: VITAMIN D NOS
  7. ZYRTEC [Concomitant]
     Active Substance: CETIRIZINE HYDROCHLORIDE
  8. SYMBICORT [Concomitant]
     Active Substance: BUDESONIDE\FORMOTEROL FUMARATE DIHYDRATE

REACTIONS (10)
  - Palpitations [None]
  - Anxiety [None]
  - Blood pressure increased [None]
  - Drug intolerance [None]
  - Headache [None]
  - Manufacturing production issue [None]
  - Dyspnoea [None]
  - Product quality issue [None]
  - Cardiac flutter [None]
  - Dizziness [None]

NARRATIVE: CASE EVENT DATE: 20210417
